FAERS Safety Report 5290786-9 (Version None)
Quarter: 2007Q2

REPORT INFORMATION
  Report Type: 
  Country: None (occurrence: None)
  Receive Date: 20070409
  Receipt Date: 20070327
  Transmission Date: 20071010
  Serious: Yes (Hospitalization)
  Sender: FDA-Public Use
  Company Number: JP-MERCK-0611USA06272

PATIENT
  Age: 89 Year
  Sex: Female
  Weight: 48 kg

DRUGS (12)
  1. PRIMAXIN [Suspect]
     Indication: PNEUMONIA
     Route: 042
     Dates: start: 20061114, end: 20061116
  2. PEPCID RPD [Suspect]
     Route: 048
     Dates: end: 20061118
  3. ALLOPURINOL [Suspect]
     Route: 048
     Dates: end: 20061118
  4. THYRADIN-S [Concomitant]
     Route: 048
  5. OLMETEC [Concomitant]
     Route: 048
  6. THEO-DUR [Concomitant]
     Route: 048
  7. AMBROXOL HYDROCHLORIDE [Concomitant]
     Route: 048
  8. GASTROM [Concomitant]
     Route: 048
  9. FUROSEMIDE [Concomitant]
     Route: 048
  10. RISPERDAL [Concomitant]
     Route: 048
  11. TASMOLIN TABLETS [Concomitant]
     Route: 048
  12. ALOTEC [Concomitant]
     Route: 048

REACTIONS (2)
  - AGRANULOCYTOSIS [None]
  - DRUG INTERACTION [None]
